FAERS Safety Report 19601241 (Version 1)
Quarter: 2021Q3

REPORT INFORMATION
  Report Type: Spontaneous
  Country: US (occurrence: US)
  Receive Date: 20210722
  Receipt Date: 20210722
  Transmission Date: 20211014
  Serious: No
  Sender: FDA-Public Use
  Company Number: US-009507513-2107USA000665

PATIENT
  Sex: Male
  Weight: 130.2 kg

DRUGS (2)
  1. ALBUTEROL SULFATE. [Suspect]
     Active Substance: ALBUTEROL SULFATE
     Dosage: 2 PILLS MORNING; 1 PILL AFTERNOON; 1 PILL EVENING AND 2 PILLS BEFORE BED
     Route: 048
  2. PRINIVIL [Suspect]
     Active Substance: LISINOPRIL
     Dosage: UNK
     Route: 058
     Dates: start: 20170911

REACTIONS (1)
  - Hypersensitivity [Unknown]
